FAERS Safety Report 25708744 (Version 4)
Quarter: 2025Q3

REPORT INFORMATION
  Report Type: Spontaneous
  Country: US (occurrence: US)
  Receive Date: 20250821
  Receipt Date: 20250920
  Transmission Date: 20251021
  Serious: No
  Sender: UNITED THERAPEUTICS
  Company Number: US-UNITED THERAPEUTICS-UNT-2025-028065

PATIENT
  Sex: Female
  Weight: 70.295 kg

DRUGS (28)
  1. TYVASO DPI [Suspect]
     Active Substance: TREPROSTINIL
     Indication: Pulmonary arterial hypertension
     Dosage: 32 ?G, QID
     Dates: start: 2025, end: 2025
  2. TYVASO DPI [Suspect]
     Active Substance: TREPROSTINIL
     Indication: Connective tissue disorder
  3. TYVASO DPI [Suspect]
     Active Substance: TREPROSTINIL
     Indication: Interstitial lung disease
     Dosage: 48 ?G, QID
     Dates: start: 2025, end: 2025
  4. TYVASO DPI [Suspect]
     Active Substance: TREPROSTINIL
     Dosage: 32 ?G, QID
     Dates: start: 2025
  5. TYVASO DPI [Suspect]
     Active Substance: TREPROSTINIL
  6. TYVASO DPI [Suspect]
     Active Substance: TREPROSTINIL
     Indication: Pulmonary arterial hypertension
  7. TYVASO DPI [Suspect]
     Active Substance: TREPROSTINIL
     Indication: Connective tissue disorder
  8. TYVASO DPI [Suspect]
     Active Substance: TREPROSTINIL
     Indication: Interstitial lung disease
  9. TYVASO DPI [Suspect]
     Active Substance: TREPROSTINIL
     Indication: Pulmonary arterial hypertension
  10. TYVASO DPI [Suspect]
     Active Substance: TREPROSTINIL
     Indication: Connective tissue disorder
  11. TYVASO DPI [Suspect]
     Active Substance: TREPROSTINIL
     Indication: Interstitial lung disease
  12. TYVASO DPI [Suspect]
     Active Substance: TREPROSTINIL
     Indication: Pulmonary arterial hypertension
  13. TYVASO DPI [Suspect]
     Active Substance: TREPROSTINIL
     Indication: Connective tissue disorder
  14. TYVASO DPI [Suspect]
     Active Substance: TREPROSTINIL
     Indication: Interstitial lung disease
  15. AMITRIPTYLINE HYDROCHLORIDE [Concomitant]
     Active Substance: AMITRIPTYLINE HYDROCHLORIDE
     Indication: Product used for unknown indication
  16. VITAMIN D2 [Concomitant]
     Active Substance: ERGOCALCIFEROL
     Indication: Product used for unknown indication
  17. AZATHIOPRINE [Concomitant]
     Active Substance: AZATHIOPRINE
     Indication: Product used for unknown indication
  18. ZOLOFT [Concomitant]
     Active Substance: SERTRALINE HYDROCHLORIDE
     Indication: Product used for unknown indication
  19. ROPINIROLE [Concomitant]
     Active Substance: ROPINIROLE
     Indication: Product used for unknown indication
  20. SILDENAFIL CITRATE [Concomitant]
     Active Substance: SILDENAFIL CITRATE
     Indication: Product used for unknown indication
  21. ALBUTEROL SULFATE [Concomitant]
     Active Substance: ALBUTEROL SULFATE
     Indication: Product used for unknown indication
  22. OFEV [Concomitant]
     Active Substance: NINTEDANIB
     Indication: Product used for unknown indication
  23. VITAMIN B12 [Concomitant]
     Active Substance: CYANOCOBALAMIN
     Indication: Product used for unknown indication
  24. BUMETANIDE [Concomitant]
     Active Substance: BUMETANIDE
     Indication: Product used for unknown indication
  25. LIDOCAINE [Concomitant]
     Active Substance: LIDOCAINE
     Indication: Product used for unknown indication
  26. ZINC [Concomitant]
     Active Substance: ZINC
     Indication: Product used for unknown indication
  27. DEXILANT [Concomitant]
     Active Substance: DEXLANSOPRAZOLE
     Indication: Product used for unknown indication
  28. CHANTIX [Concomitant]
     Active Substance: VARENICLINE TARTRATE
     Indication: Product used for unknown indication

REACTIONS (3)
  - Fatigue [Not Recovered/Not Resolved]
  - Tremor [Not Recovered/Not Resolved]
  - Hypersomnia [Unknown]

NARRATIVE: CASE EVENT DATE: 20250101
